FAERS Safety Report 5952994-0 (Version None)
Quarter: 2008Q4

REPORT INFORMATION
  Report Type: 
  Country: None (occurrence: None)
  Receive Date: 20081114
  Receipt Date: 20081103
  Transmission Date: 20090506
  Serious: Yes (Hospitalization)
  Sender: FDA-Public Use
  Company Number: US-AVENTIS-200815128US

PATIENT
  Sex: Female
  Weight: 65 kg

DRUGS (15)
  1. KETEK [Suspect]
     Indication: BRONCHITIS
     Dates: start: 20070101, end: 20070101
  2. ASPIRIN [Concomitant]
  3. ENBREL [Concomitant]
     Dates: start: 20061201
  4. METHOTREXATE [Concomitant]
     Dates: end: 20070101
  5. CELEBREX [Concomitant]
  6. PROAMATINE [Concomitant]
  7. ZETIA [Concomitant]
  8. ZEBETA [Concomitant]
  9. PREMARIN [Concomitant]
  10. FLEXERIL [Concomitant]
     Dosage: DOSE: UNK
  11. COLACE [Concomitant]
     Dosage: DOSE: UNK
  12. MULTI-VITAMINS [Concomitant]
     Dosage: DOSE: UNK
     Route: 048
  13. LOZOL [Concomitant]
  14. OMEGA-3                            /01168901/ [Concomitant]
     Dosage: DOSE: UNK
  15. ACIPHEX [Concomitant]

REACTIONS (7)
  - ALANINE AMINOTRANSFERASE INCREASED [None]
  - ASPARTATE AMINOTRANSFERASE INCREASED [None]
  - BLOOD ALKALINE PHOSPHATASE INCREASED [None]
  - DYSPNOEA [None]
  - LIVER FUNCTION TEST ABNORMAL [None]
  - PNEUMONITIS [None]
  - URTICARIA [None]
